FAERS Safety Report 7293028-8 (Version None)
Quarter: 2011Q1

REPORT INFORMATION
  Report Type: 
  Country: None (occurrence: None)
  Receive Date: 20110210
  Receipt Date: 20110210
  Transmission Date: 20110831
  Serious: Yes (Other)
  Sender: FDA-Public Use
  Company Number: None

PATIENT
  Age: 77 Year
  Sex: Male

DRUGS (13)
  1. SIMVASTATIN [Concomitant]
  2. TYLENOL [Concomitant]
  3. ASPIRIN [Concomitant]
  4. TRAMADOL [Concomitant]
  5. RAPAFLO [Concomitant]
  6. UROXATRAL [Concomitant]
  7. RANIBIZUMAB [Suspect]
     Indication: MALIGNANT MELANOMA
     Dosage: MONTHLY 2MG INTRAVITREAL
     Dates: start: 20101020, end: 20110105
  8. DEXAMETHASONE [Concomitant]
  9. TRANSPUPILLARY THERMOTHERAPY WITH INDOCYANINE GREEN [Suspect]
     Indication: MALIGNANT MELANOMA
     Dosage: MONTHLY TTT AND ICG 75MG
     Dates: start: 20101020, end: 20110105
  10. PLAVIX [Concomitant]
  11. DIOVAN [Concomitant]
  12. AMLODIPINE BESYLATE [Concomitant]
  13. PREDNISONE [Concomitant]

REACTIONS (4)
  - RETINAL EXUDATES [None]
  - CHOROIDAL DETACHMENT [None]
  - SUBRETINAL FIBROSIS [None]
  - RETINAL DETACHMENT [None]
